FAERS Safety Report 7056582-7 (Version None)
Quarter: 2010Q4

REPORT INFORMATION
  Report Type: 
  Country: None (occurrence: None)
  Receive Date: 20101021
  Receipt Date: 20101012
  Transmission Date: 20110411
  Serious: Yes (Death, Hospitalization, Disabling, Other)
  Sender: FDA-Public Use
  Company Number: US-MERCK-0903USA00095

PATIENT
  Age: 76 Year
  Sex: Female
  Weight: 65 kg

DRUGS (8)
  1. FOSAMAX [Suspect]
     Indication: OSTEOPOROSIS
     Route: 048
     Dates: start: 20010420, end: 20080308
  2. CALCIUM (UNSPECIFIED) AND VITAMIN D (UNSPECIFIED) [Concomitant]
     Route: 065
  3. ASPIRIN [Concomitant]
     Route: 065
     Dates: start: 19960101
  4. GLIPIZIDE [Concomitant]
     Indication: TYPE 2 DIABETES MELLITUS
     Route: 065
     Dates: start: 19960101
  5. METFORMIN [Concomitant]
     Indication: TYPE 2 DIABETES MELLITUS
     Route: 065
     Dates: start: 19960101
  6. METOPROLOL [Concomitant]
     Indication: HYPERTENSION
     Route: 065
     Dates: start: 19960101
  7. SIMVASTATIN [Concomitant]
     Indication: BLOOD CHOLESTEROL INCREASED
     Route: 065
     Dates: start: 19960101
  8. BENAZEPRIL HYDROCHLORIDE [Concomitant]
     Indication: HYPERTENSION
     Route: 065
     Dates: start: 19960101

REACTIONS (60)
  - ABNORMAL LOSS OF WEIGHT [None]
  - ABSCESS [None]
  - AGITATION [None]
  - ALVEOLAR OSTEITIS [None]
  - ANAEMIA [None]
  - ARTHRITIS [None]
  - BACK PAIN [None]
  - BLOOD PRESSURE SYSTOLIC INCREASED [None]
  - BONE DENSITY DECREASED [None]
  - BREAST CANCER IN SITU [None]
  - BRONCHITIS [None]
  - CATARACT [None]
  - CONTUSION [None]
  - DEAFNESS [None]
  - DEATH [None]
  - DECREASED APPETITE [None]
  - DEHYDRATION [None]
  - DENTAL FISTULA [None]
  - DEVICE OCCLUSION [None]
  - DIABETES MELLITUS INADEQUATE CONTROL [None]
  - DIABETIC NEUROPATHY [None]
  - DIPLOPIA [None]
  - DIZZINESS [None]
  - DRUG HYPERSENSITIVITY [None]
  - DRY MOUTH [None]
  - DYSPEPSIA [None]
  - EMPHYSEMA [None]
  - FALL [None]
  - FALLOPIAN TUBE DISORDER [None]
  - FATIGUE [None]
  - GASTRIC CANCER [None]
  - GASTRITIS [None]
  - HEADACHE [None]
  - HYPERTENSION [None]
  - HYPOGLYCAEMIA [None]
  - HYPOPHAGIA [None]
  - IMPAIRED HEALING [None]
  - INSOMNIA [None]
  - JOINT SWELLING [None]
  - KYPHOSIS [None]
  - LYMPHADENOPATHY [None]
  - MALAISE [None]
  - MEMORY IMPAIRMENT [None]
  - METAPLASIA [None]
  - METASTASES TO LYMPH NODES [None]
  - METASTATIC GASTRIC CANCER [None]
  - MYALGIA [None]
  - NASAL POLYPS [None]
  - NAUSEA [None]
  - OBESITY [None]
  - OBSTRUCTION GASTRIC [None]
  - OSTEITIS DEFORMANS [None]
  - OSTEOMYELITIS [None]
  - OSTEONECROSIS OF JAW [None]
  - PRESYNCOPE [None]
  - SYNCOPE [None]
  - TREATMENT NONCOMPLIANCE [None]
  - TREMOR [None]
  - VOMITING [None]
  - WEIGHT DECREASED [None]
